FAERS Safety Report 10838950 (Version 4)
Quarter: 2015Q2

REPORT INFORMATION
  Report Type: Spontaneous
  Country: GB (occurrence: None)
  Receive Date: 20150218
  Receipt Date: 20150424
  Transmission Date: 20150821
  Serious: No
  Sender: FDA-Public Use
  Company Number: GB2015K0345SPO

PATIENT
  Sex: Male

DRUGS (18)
  1. ACIDEX (CALCIUM CARBONATE, SODIUM ALGINATE, SODIUM BICARBONATE) [Concomitant]
  2. CLONAZEPAM (CLONAZEPAM) [Concomitant]
     Active Substance: CLONAZEPAM
  3. DIAZEPAM (DIAZEPAM) [Concomitant]
     Active Substance: DIAZEPAM
  4. MOVICOL (MACROGOL 3350, POLYETHYLENE GLYCOL 3350, POTASSIUM CHLORIDE, SODIUM BICARBONATE, SODIIUM CHLORIDE, SODIUM HYDROGEN CARBONATE) [Concomitant]
  5. LANSOPRAZOLE GENERIC [Suspect]
     Active Substance: LANSOPRAZOLE
     Indication: PRODUCT USED FOR UNKNOWN INDICATION
     Dosage: 15 MG, 1X PER DAY
  6. PHYLLOCONTIN CONTINUS (AMINOPHYLLINE, AMINOPHYLLINE HYDRATE) [Concomitant]
  7. TRAMADOL (TRAMADOL) [Concomitant]
     Active Substance: TRAMADOL
  8. PARACETAMOL (PARACETAMOL) [Concomitant]
     Active Substance: ACETAMINOPHEN
  9. LANSOPRAZOLE (LANSOPRAZOLE) [Suspect]
     Active Substance: LANSOPRAZOLE
     Indication: PRODUCT USED FOR UNKNOWN INDICATION
  10. DOXAZOSIN [Concomitant]
     Active Substance: DOXAZOSIN\DOXAZOSIN MESYLATE
  11. DURAPHAT (SODIUM FLORIDE) [Concomitant]
  12. MEBEVERINE (MEBEVERINE) [Suspect]
     Active Substance: MEBEVERINE
     Dosage: 50 MG, UNK
  13. LOSARTAN (LOSARTAN) [Concomitant]
     Active Substance: LOSARTAN
  14. VENTOLIN (SALBUTAMOL, SALBUTAMOL BASE, SALBUTAMOL SULPHATE, SALBUTAMOL SULPHATE MICRONISED) [Concomitant]
  15. CARBOCISTEINE (CARBOCISTEINE) [Concomitant]
     Active Substance: CARBOCYSTEINE
  16. SERETIDE [Concomitant]
     Active Substance: FLUTICASONE FUROATE\SALMETEROL XINAFOATE
  17. SODIUM CHLORIDE (SODIUIM CHLORIDE) [Concomitant]
  18. SPIRIVA [Concomitant]
     Active Substance: TIOTROPIUM BROMIDE MONOHYDRATE

REACTIONS (8)
  - Eye infection [None]
  - Nightmare [None]
  - Sinusitis [None]
  - Cough [None]
  - Hallucination [None]
  - Haematoma [None]
  - Lower respiratory tract infection [None]
  - Somnambulism [None]
